FAERS Safety Report 22260641 (Version 1)
Quarter: 2023Q2

REPORT INFORMATION
  Report Type: Report from Study
  Country: US (occurrence: US)
  Receive Date: 20230427
  Receipt Date: 20230427
  Transmission Date: 20230721
  Serious: Yes (Hospitalization)
  Sender: FDA-Public Use
  Company Number: US-MYLANLABS-2023M1044141

PATIENT
  Sex: Female

DRUGS (18)
  1. VENLAFAXINE [Suspect]
     Active Substance: VENLAFAXINE HYDROCHLORIDE
     Indication: Product used for unknown indication
     Dosage: 75 MILLIGRAM (ONE CAPSULE IN THE AM AND 2 CAPSULES IN THE PM BY MOUTH )
     Route: 065
  2. TOVIAZ [Concomitant]
     Active Substance: FESOTERODINE FUMARATE
     Indication: Product used for unknown indication
     Dosage: 8 MILLIGRAM, QD (8MG TABLETS. TOOK 1 TABLET A DAY BY MOUTH)
     Route: 065
  3. LISINOPRIL [Concomitant]
     Active Substance: LISINOPRIL
     Indication: Blood pressure measurement
     Dosage: 20 MILLIGRAM, QD (20MG. TAKES 1 TABLET BY MOUTH DAILY)
     Route: 065
  4. MYCOPHENOLATE SODIUM [Concomitant]
     Active Substance: MYCOPHENOLATE SODIUM
     Dosage: 180 MILLIGRAM, BID (180MG DELAYED RELEASE. TAKES 1 TABLET ORALLY TWICE A DAY)
     Route: 048
  5. AMLODIPINE MESYLATE [Concomitant]
     Active Substance: AMLODIPINE MESYLATE
     Dosage: 10 MILLIGRAM, QD (10MG. TAKES 1 TABLET ONCE A DAY ORALLY)
     Route: 048
  6. OFEV [Concomitant]
     Active Substance: NINTEDANIB
     Dosage: 150 MILLIGRAM, BID (150MG. TAKES 1 CAPSULE ORALLY EVERY 12 HOURS)
     Route: 048
  7. ACETAMINOPHEN [Concomitant]
     Active Substance: ACETAMINOPHEN
     Dosage: 325 MILLIGRAM, QID (325MG TABLETS. TAKES 2 TABLETS AS NEEDED ORALLY EVERY 6 HOURS)
     Route: 048
  8. ASPIRIN [Concomitant]
     Active Substance: ASPIRIN
     Dosage: 81 MILLIGRAM, QD (ADULT LOW DOSE 81MG DELAYED RELEASE. TAKES 1 TABLET ORALLY A DAY)
     Route: 048
  9. OXYBUTYNIN CHLORIDE [Concomitant]
     Active Substance: OXYBUTYNIN CHLORIDE
     Dosage: 10 MILLIGRAM, QD (10MG EXTENDED RELEASE 24 HOUR. TAKES 1 TABLET ORALLY ONCE A DAY)
     Route: 048
  10. BASAGLAR KWIKPEN [Concomitant]
     Active Substance: INSULIN GLARGINE
     Dosage: 45 INTERNATIONAL UNIT, QD (100UNITS/ML SOLUTION. TAKES 45 UNITS SUBCUTANEOUS ONCE A DAY)
     Route: 058
  11. CALCITRIOL [Concomitant]
     Active Substance: CALCITRIOL
     Dosage: 25 MICROGRAM, QD (25MCG. TAKES 1 CAPSULE ORALLY ONCE A DAY)
     Route: 048
  12. GABAPENTIN [Concomitant]
     Active Substance: GABAPENTIN
     Dosage: 300 MILLIGRAM, QD (300MG. TAKES 1 CAPSULE ORALLY ONCE A DAY)
     Route: 048
  13. HUMALOG [Concomitant]
     Active Substance: INSULIN LISPRO
     Dosage: 12 INTERNATIONAL UNIT (100UNITS/ML SOLUTION. 12 UNITS SQ AS NEEDED AND TID )
     Route: 058
  14. LEVOTHYROXINE SODIUM [Concomitant]
     Active Substance: LEVOTHYROXINE SODIUM
     Dosage: 150 MICROGRAM, QD (TAKES ONE TABLET IN THE MORNING ON EMPTY STOMACH BY MOUTH ONCE A DAY)
     Route: 065
  15. OMEPRAZOLE [Concomitant]
     Active Substance: OMEPRAZOLE
     Dosage: 20 MILLIGRAM, QD (TAKES 1 CAPSULE 30 MINUTES BEFORE MORNING MEAL BY MOUTH ONCE A DAY)
     Route: 065
  16. OXYCODONE HYDROCHLORIDE [Concomitant]
     Active Substance: OXYCODONE HYDROCHLORIDE
     Dosage: 15 MILLIGRAM, QID (TAKES 1 TABLET AS NEEDED EVERY 6 HOURS ORALLY)
     Route: 048
  17. PRAVASTATIN SODIUM [Concomitant]
     Active Substance: PRAVASTATIN SODIUM
     Dosage: 40 MILLIGRAM, QD (TAKES 1 TABLET BY MOUTH ONCE A DAY)
     Route: 065
  18. PREDNISONE [Concomitant]
     Active Substance: PREDNISONE
     Dosage: 5 MILLIGRAM, QD (TAKES 1 TABLET ORALLY ONCE A DAY)
     Route: 048

REACTIONS (1)
  - Hospitalisation [Unknown]
